FAERS Safety Report 6193305-8 (Version None)
Quarter: 2009Q2

REPORT INFORMATION
  Report Type: 
  Country: None (occurrence: None)
  Receive Date: 20090514
  Receipt Date: 20090514
  Transmission Date: 20091009
  Serious: Yes (Life-Threatening, Hospitalization, Disabling)
  Sender: FDA-Public Use
  Company Number: None

PATIENT
  Age: 76 Year
  Weight: 68.0396 kg

DRUGS (1)
  1. AVELOX [Suspect]
     Indication: SINUSITIS
     Dosage: 1 DAY PO, 1 PILL
     Route: 048
     Dates: start: 20090401, end: 20090401

REACTIONS (7)
  - CARDIAC PACEMAKER INSERTION [None]
  - FEELING ABNORMAL [None]
  - HEADACHE [None]
  - HEART RATE DECREASED [None]
  - LEAD DISLODGEMENT [None]
  - MALAISE [None]
  - VISION BLURRED [None]
